FAERS Safety Report 8306132-X (Version None)
Quarter: 2012Q2

REPORT INFORMATION
  Report Type: 
  Country: None (occurrence: None)
  Receive Date: 20120423
  Receipt Date: 20120416
  Transmission Date: 20120825
  Serious: Yes (Other)
  Sender: FDA-Public Use
  Company Number: US-BAYER-2012-038026

PATIENT
  Sex: Female

DRUGS (1)
  1. ASPIRIN [Suspect]
     Dosage: UNK
     Route: 048

REACTIONS (1)
  - MALAISE [None]
